FAERS Safety Report 24285649 (Version 1)
Quarter: 2024Q3

REPORT INFORMATION
  Report Type: Spontaneous
  Country: US (occurrence: US)
  Receive Date: 20240905
  Receipt Date: 20240905
  Transmission Date: 20241017
  Serious: Yes (Other)
  Sender: LUPIN
  Company Number: US-LUPIN HEALTHCARE (UK) LIMITED-2024-07653

PATIENT

DRUGS (1)
  1. SERTRALINE HYDROCHLORIDE [Suspect]
     Active Substance: SERTRALINE HYDROCHLORIDE
     Indication: Product used for unknown indication
     Dosage: UNK
     Route: 065

REACTIONS (12)
  - Arthralgia [Unknown]
  - Panic reaction [Unknown]
  - Headache [Unknown]
  - Electric shock sensation [Unknown]
  - Neck pain [Unknown]
  - Disturbance in attention [Unknown]
  - Thinking abnormal [Unknown]
  - Withdrawal syndrome [Unknown]
  - Product substitution issue [Unknown]
  - Hyperhidrosis [Unknown]
  - Manufacturing materials issue [Unknown]
  - Therapeutic response changed [Unknown]
